FAERS Safety Report 13741213 (Version 1)
Quarter: 2017Q3

REPORT INFORMATION
  Report Type: Spontaneous
  Country: US (occurrence: US)
  Receive Date: 20170710
  Receipt Date: 20170710
  Transmission Date: 20171127
  Serious: No
  Sender: FDA-Public Use
  Company Number: None

PATIENT
  Sex: Female
  Weight: 87.17 kg

DRUGS (2)
  1. STELARA [Suspect]
     Active Substance: USTEKINUMAB
     Indication: PSORIATIC ARTHROPATHY
     Dosage: 45MG Q12W SUBCUTANEOUSLY
     Route: 058
     Dates: start: 201704
  2. STELARA [Suspect]
     Active Substance: USTEKINUMAB
     Indication: RHEUMATOID ARTHRITIS
     Dosage: 45MG Q12W SUBCUTANEOUSLY
     Route: 058
     Dates: start: 201704

REACTIONS (2)
  - Drug ineffective [None]
  - Extra dose administered [None]
